FAERS Safety Report 23652346 (Version 1)
Quarter: 2024Q1

REPORT INFORMATION
  Report Type: Other
  Country: CN (occurrence: None)
  Receive Date: 20240320
  Receipt Date: 20240320
  Transmission Date: 20240410
  Serious: Yes (Other)
  Sender: FDA-Public Use
  Company Number: CN-ROCHE-3528159

PATIENT

DRUGS (4)
  1. TRASTUZUMAB [Suspect]
     Active Substance: TRASTUZUMAB
     Indication: HER2 positive breast cancer
     Route: 042
  2. PACLITAXEL [Suspect]
     Active Substance: PACLITAXEL
     Indication: HER2 positive breast cancer
     Route: 041
  3. CARBOPLATIN [Suspect]
     Active Substance: CARBOPLATIN
     Indication: HER2 positive breast cancer
     Dosage: 300 TO 400 MG/M2. MAINTENANCE DOSING FOR 5 DAYS AS A CYCLE, FOLLOWED BY ANOTHER DOSING AFTER AN INTE
     Route: 041
  4. PYROTINIB [Suspect]
     Active Substance: PYROTINIB
     Indication: HER2 positive breast cancer
     Dosage: IT IS ADMINISTERED ORALLY WITHIN 30 MINUTES AFTER MEALS AND MAINTAINED FOR 4 WEEKS AS A COURSE OF TR
     Route: 048

REACTIONS (6)
  - Platelet disorder [Unknown]
  - White blood cell count abnormal [Unknown]
  - Gastrointestinal disorder [Unknown]
  - Blood bilirubin increased [Unknown]
  - Stomatitis [Unknown]
  - Palmar-plantar erythrodysaesthesia syndrome [Unknown]
